FAERS Safety Report 9037105 (Version 2)
Quarter: 2013Q1

REPORT INFORMATION
  Report Type: Spontaneous
  Country: CA (occurrence: None)
  Receive Date: 20121211
  Receipt Date: 20130214
  Transmission Date: 20140127
  Serious: Yes (Hospitalization)
  Sender: FDA-Public Use
  Company Number: 2012034184

PATIENT
  Age: 14 Year
  Sex: Female

DRUGS (1)
  1. PRIVIGEN (IMMUNE GLOBULIN INTRAVENOUS (HUMAN) 10% LIQUID) [Suspect]
     Dosage: TOTAL
     Route: 042

REACTIONS (4)
  - Haemoglobin decreased [None]
  - Anti-erythrocyte antibody positive [None]
  - Coombs direct test positive [None]
  - Headache [None]
